FAERS Safety Report 9844443 (Version 1)
Quarter: 2014Q1

REPORT INFORMATION
  Report Type: Spontaneous
  Country: US (occurrence: None)
  Receive Date: 20140123
  Receipt Date: 20140123
  Transmission Date: 20141002
  Serious: Yes (Other)
  Sender: FDA-Public Use
  Company Number: None

PATIENT
  Age: 53 Year
  Sex: Female
  Weight: 90.72 kg

DRUGS (1)
  1. ROHTO HDRA [Suspect]
     Indication: EYE DISORDER
     Dates: start: 20131215, end: 20140102

REACTIONS (2)
  - Eye irritation [None]
  - Drug ineffective [None]
